FAERS Safety Report 7297895-3 (Version None)
Quarter: 2011Q1

REPORT INFORMATION
  Report Type: 
  Country: None (occurrence: None)
  Receive Date: 20110217
  Receipt Date: 20101213
  Transmission Date: 20110831
  Serious: No
  Sender: FDA-Public Use
  Company Number: US-KINGPHARMUSA00001-K201001504

PATIENT
  Sex: Female
  Weight: 63.492 kg

DRUGS (2)
  1. FLECTOR [Suspect]
     Indication: MUSCULOSKELETAL PAIN
     Dosage: 1 PATCH, Q12H
     Route: 061
     Dates: start: 20101206, end: 20101208
  2. VICODIN [Concomitant]
     Indication: PAIN
     Dosage: UNK

REACTIONS (1)
  - APPLICATION SITE BLEEDING [None]
